FAERS Safety Report 5709716-8 (Version None)
Quarter: 2008Q2

REPORT INFORMATION
  Report Type: 
  Country: None (occurrence: None)
  Receive Date: 20080418
  Receipt Date: 20080409
  Transmission Date: 20081010
  Serious: Yes (Other)
  Sender: FDA-Public Use
  Company Number: PHHY2008JP04981

PATIENT
  Age: 63 Year
  Sex: Male

DRUGS (4)
  1. TEGRETOL [Suspect]
     Indication: CONVULSION
     Route: 048
  2. ALEVIATIN [Suspect]
     Indication: CONVULSION
     Route: 042
  3. DIAZEPAM [Suspect]
     Indication: CONVULSION
     Route: 042
  4. DEPAKENE [Concomitant]
     Route: 048

REACTIONS (4)
  - BLOOD CREATINE PHOSPHOKINASE INCREASED [None]
  - MYOGLOBINURIA [None]
  - PYREXIA [None]
  - RHABDOMYOLYSIS [None]
